FAERS Safety Report 24210660 (Version 1)
Quarter: 2024Q3

REPORT INFORMATION
  Report Type: Spontaneous
  Country: HR (occurrence: HR)
  Receive Date: 20240814
  Receipt Date: 20240814
  Transmission Date: 20241017
  Serious: Yes (Hospitalization)
  Sender: BOEHRINGER INGELHEIM
  Company Number: HR-BoehringerIngelheim-2024-BI-045384

PATIENT
  Age: 63 Year
  Sex: Female

DRUGS (2)
  1. MELOXICAM [Suspect]
     Active Substance: MELOXICAM
     Indication: Ankylosing spondylitis
  2. METHYLPREDNISOLONE [Concomitant]
     Active Substance: METHYLPREDNISOLONE
     Indication: Product used for unknown indication

REACTIONS (8)
  - Subileus [Unknown]
  - Abdominal pain [Unknown]
  - Abdominal pain [Unknown]
  - Subileus [Unknown]
  - Abdominal pain [Unknown]
  - Subileus [Unknown]
  - Iron deficiency anaemia [Unknown]
  - Faecal calprotectin increased [Not Recovered/Not Resolved]

NARRATIVE: CASE EVENT DATE: 20200801
